FAERS Safety Report 17099537 (Version 1)
Quarter: 2019Q4

REPORT INFORMATION
  Report Type: Spontaneous
  Country: US (occurrence: US)
  Receive Date: 20191202
  Receipt Date: 20191202
  Transmission Date: 20200122
  Serious: No
  Sender: FDA-Public Use
  Company Number: US-PFIZER INC-2019518321

PATIENT
  Age: 2 Year
  Sex: Male

DRUGS (2)
  1. BENZYLPENICILLIN POTASSIUM [Suspect]
     Active Substance: PENICILLIN G POTASSIUM
     Indication: PHARYNGITIS
  2. BENZYLPENICILLIN POTASSIUM [Suspect]
     Active Substance: PENICILLIN G POTASSIUM
     Indication: STREPTOCOCCAL INFECTION
     Dosage: 0.6 MILLION IU, UNK (0.6 MILLION UNITS WHICH WAS 1 CC)
     Route: 030

REACTIONS (1)
  - Abscess [Unknown]
